FAERS Safety Report 7311462-4 (Version None)
Quarter: 2011Q1

REPORT INFORMATION
  Report Type: 
  Country: None (occurrence: None)
  Receive Date: 20110224
  Receipt Date: 20110214
  Transmission Date: 20110831
  Serious: Yes (Hospitalization)
  Sender: FDA-Public Use
  Company Number: ES-BAYER-201022882GPV

PATIENT
  Sex: Male
  Weight: 77.9 kg

DRUGS (66)
  1. OXALIPLATIN [Suspect]
     Dosage: 170
     Route: 042
     Dates: start: 20100614, end: 20100614
  2. ADDITIONAL STUDY MEDICATION [Suspect]
     Dosage: 800
     Route: 042
     Dates: start: 20100528, end: 20100528
  3. ADDITIONAL STUDY MEDICATION [Suspect]
     Dosage: 800
     Route: 042
     Dates: start: 20100824, end: 20100824
  4. 5-FU [Suspect]
     Indication: COLORECTAL CANCER METASTATIC
     Dosage: 800
     Route: 040
     Dates: start: 20100208
  5. 5-FU [Suspect]
     Dosage: 800
     Route: 040
     Dates: start: 20100514
  6. 5-FU [Suspect]
     Dosage: 4800
     Route: 041
     Dates: start: 20100810, end: 20100812
  7. SORAFENIB (RAF KINASE INHIBITOR) [Suspect]
     Dosage: UNK, BID
     Dates: start: 20100305, end: 20100412
  8. ADDITIONAL STUDY MEDICATION [Suspect]
     Indication: COLORECTAL CANCER METASTATIC
     Dosage: 800
     Route: 042
     Dates: start: 20100208, end: 20100208
  9. ADDITIONAL STUDY MEDICATION [Suspect]
     Dosage: 800
     Route: 042
     Dates: start: 20100727, end: 20100727
  10. 5-FU [Suspect]
     Dosage: 4800
     Route: 041
     Dates: start: 20100208, end: 20100210
  11. 5-FU [Suspect]
     Dosage: 800
     Route: 040
     Dates: start: 20100614
  12. 5-FU [Suspect]
     Dosage: 800
     Route: 040
     Dates: start: 20100810
  13. 5-FU [Suspect]
     Dosage: 800
     Route: 040
     Dates: start: 20100907
  14. 5-FU [Suspect]
     Dosage: 4800
     Route: 041
     Dates: start: 20100413, end: 20100415
  15. SORAFENIB (RAF KINASE INHIBITOR) [Suspect]
     Dosage: 400 MG, BID
     Dates: start: 20100413, end: 20100416
  16. SORAFENIB (RAF KINASE INHIBITOR) [Suspect]
     Dosage: UNK, BID
     Dates: start: 20100823, end: 20100906
  17. ADDITIONAL STUDY MEDICATION [Suspect]
     Dosage: 800
     Route: 042
     Dates: start: 20100413, end: 20100413
  18. ADDITIONAL STUDY MEDICATION [Suspect]
     Dosage: 800
     Route: 042
     Dates: start: 20100614, end: 20100614
  19. 5-FU [Suspect]
     Dosage: 4800
     Route: 041
     Dates: start: 20100222, end: 20100224
  20. 5-FU [Suspect]
     Dosage: 800
     Route: 040
     Dates: start: 20100413
  21. 5-FU [Suspect]
     Dosage: 800
     Route: 040
     Dates: start: 20100528
  22. 5-FU [Suspect]
     Dosage: 800
     Route: 040
     Dates: start: 20100614
  23. 5-FU [Suspect]
     Dosage: 4800
     Route: 041
     Dates: start: 20100727, end: 20100729
  24. SORAFENIB (RAF KINASE INHIBITOR) [Suspect]
     Dosage: UNK, BID
     Dates: start: 20100417, end: 20100512
  25. OXALIPLATIN [Suspect]
     Dosage: 170
     Route: 042
     Dates: start: 20100308, end: 20100308
  26. OXALIPLATIN [Suspect]
     Dosage: 170
     Route: 042
     Dates: start: 20100628, end: 20100628
  27. OXALIPLATIN [Suspect]
     Dosage: 170
     Route: 042
     Dates: start: 20100727, end: 20100727
  28. ADDITIONAL STUDY MEDICATION [Suspect]
     Dosage: 800
     Route: 042
     Dates: start: 20100222, end: 20100222
  29. ADDITIONAL STUDY MEDICATION [Suspect]
     Dosage: 800
     Route: 042
     Dates: start: 20100308, end: 20100308
  30. ADDITIONAL STUDY MEDICATION [Suspect]
     Dosage: 800
     Route: 042
     Dates: start: 20100514, end: 20100514
  31. 5-FU [Suspect]
     Dosage: 4800
     Route: 041
     Dates: start: 20100528, end: 20100530
  32. OMEPRAZOLE [Concomitant]
     Indication: PROPHYLAXIS
     Dosage: 20 MG (DAILY DOSE), QD, ORAL
     Route: 048
     Dates: start: 20100113
  33. SORAFENIB (RAF KINASE INHIBITOR) [Suspect]
     Dosage: 400 MG, QD
     Dates: start: 20100907, end: 20100919
  34. OXALIPLATIN [Suspect]
     Indication: COLORECTAL CANCER METASTATIC
     Dosage: 170
     Route: 042
     Dates: start: 20100208, end: 20100208
  35. OXALIPLATIN [Suspect]
     Dosage: 170
     Route: 042
     Dates: start: 20100222, end: 20100222
  36. OXALIPLATIN [Suspect]
     Dosage: 170
     Route: 042
     Dates: start: 20100514, end: 20100514
  37. OXALIPLATIN [Suspect]
     Dosage: 170
     Route: 042
     Dates: start: 20100810, end: 20100810
  38. ADDITIONAL STUDY MEDICATION [Suspect]
     Dosage: 800
     Route: 042
     Dates: start: 20100322, end: 20100322
  39. ADDITIONAL STUDY MEDICATION [Suspect]
     Dosage: 800
     Route: 042
     Dates: start: 20100628, end: 20100628
  40. ADDITIONAL STUDY MEDICATION [Suspect]
     Dosage: 800
     Route: 042
     Dates: start: 20100907, end: 20100907
  41. 5-FU [Suspect]
     Dosage: 800
     Route: 040
     Dates: start: 20100713
  42. 5-FU [Suspect]
     Dosage: 4800
     Route: 041
     Dates: start: 20100824, end: 20100826
  43. OXALIPLATIN [Suspect]
     Dosage: 170
     Route: 042
     Dates: start: 20100413, end: 20100413
  44. ADDITIONAL STUDY MEDICATION [Suspect]
     Dosage: 800
     Route: 042
     Dates: start: 20100713, end: 20100713
  45. ADDITIONAL STUDY MEDICATION [Suspect]
     Dosage: 800
     Route: 042
     Dates: start: 20100810, end: 20100810
  46. 5-FU [Suspect]
     Dosage: 800
     Route: 040
     Dates: start: 20100322
  47. 5-FU [Suspect]
     Dosage: 4800
     Route: 041
     Dates: start: 20100308, end: 20100310
  48. 5-FU [Suspect]
     Dosage: 800
     Route: 040
     Dates: start: 20100628
  49. 5-FU [Suspect]
     Dosage: 800
     Route: 040
     Dates: start: 20100824
  50. 5-FU [Suspect]
     Dosage: 4800
     Route: 041
     Dates: start: 20100614, end: 20100616
  51. 5-FU [Suspect]
     Dosage: 4800
     Route: 041
     Dates: start: 20100713, end: 20100715
  52. OXALIPLATIN [Suspect]
     Dosage: 170
     Route: 042
     Dates: start: 20100528, end: 20100528
  53. OXALIPLATIN [Suspect]
     Dosage: 170
     Route: 042
     Dates: start: 20100713, end: 20100713
  54. 5-FU [Suspect]
     Dosage: 800
     Route: 040
     Dates: start: 20100528
  55. 5-FU [Suspect]
     Dosage: 4800
     Route: 041
     Dates: start: 20100514, end: 20100516
  56. 5-FU [Suspect]
     Dosage: 4800
     Route: 041
     Dates: start: 20100907, end: 20100909
  57. ONDANSETRON [Concomitant]
     Indication: PREMEDICATION
     Dosage: 8 MG (DAILY DOSE), QD,
     Dates: start: 20100208, end: 20100907
  58. DEXAMETHASONE [Concomitant]
     Indication: PREMEDICATION
     Dosage: 20 MG (DAILY DOSE), QD,
     Dates: start: 20100208, end: 20100907
  59. SORAFENIB (RAF KINASE INHIBITOR) [Suspect]
     Indication: COLORECTAL CANCER STAGE IV
     Route: 048
     Dates: start: 20100208, end: 20100304
  60. SORAFENIB (RAF KINASE INHIBITOR) [Suspect]
     Dosage: 400 MG, BID
     Dates: start: 20100513, end: 20100822
  61. OXALIPLATIN [Suspect]
     Dosage: 170
     Route: 042
     Dates: start: 20100322, end: 20100322
  62. 5-FU [Suspect]
     Dosage: 800
     Route: 040
     Dates: start: 20100222
  63. 5-FU [Suspect]
     Dosage: 800
     Route: 040
     Dates: start: 20100308
  64. 5-FU [Suspect]
     Dosage: 4800
     Route: 041
     Dates: start: 20100322, end: 20100324
  65. 5-FU [Suspect]
     Dosage: 800
     Route: 040
     Dates: start: 20100727
  66. 5-FU [Suspect]
     Dosage: 4800
     Route: 041
     Dates: start: 20100628, end: 20100630

REACTIONS (1)
  - MEDICAL DEVICE COMPLICATION [None]
